FAERS Safety Report 10632977 (Version 1)
Quarter: 2014Q4

REPORT INFORMATION
  Report Type: Spontaneous
  Country: US (occurrence: US)
  Receive Date: 20141205
  Receipt Date: 20141205
  Transmission Date: 20150529
  Serious: No
  Sender: FDA-Public Use
  Company Number: US-BRISTOL-MYERS SQUIBB COMPANY-21660659

PATIENT
  Age: 66 Year
  Sex: Female

DRUGS (7)
  1. SULFAMETHAZINE [Concomitant]
     Active Substance: SULFAMETHAZINE
  2. VITAMIN C [Concomitant]
     Active Substance: ASCORBIC ACID
  3. TYLENOL [Concomitant]
     Active Substance: ACETAMINOPHEN
  4. VITAMIN B12 [Concomitant]
     Active Substance: CYANOCOBALAMIN
  5. SPRYCEL [Suspect]
     Active Substance: DASATINIB
  6. SIMVASTATIN. [Concomitant]
     Active Substance: SIMVASTATIN
  7. ALENDRONATE SODIUM. [Concomitant]
     Active Substance: ALENDRONATE SODIUM

REACTIONS (1)
  - Dyspnoea [Unknown]
